FAERS Safety Report 5576186-2 (Version None)
Quarter: 2007Q4

REPORT INFORMATION
  Report Type: 
  Country: None (occurrence: None)
  Receive Date: 20071228
  Receipt Date: 20071218
  Transmission Date: 20080405
  Serious: Yes (Hospitalization)
  Sender: FDA-Public Use
  Company Number: JP-JNJFOC-20071205865

PATIENT
  Age: 35 Year
  Sex: Male

DRUGS (6)
  1. CRAVIT [Suspect]
     Indication: PERINEPHRIC ABSCESS
     Route: 048
  2. RISPERDAL [Concomitant]
     Route: 065
  3. SEROQUEL [Concomitant]
     Route: 065
  4. TAKEPRON [Concomitant]
     Route: 065
  5. ALOSENN [Concomitant]
     Route: 065
  6. FUROSEMIDE [Concomitant]
     Route: 065

REACTIONS (1)
  - ALTERED STATE OF CONSCIOUSNESS [None]
